FAERS Safety Report 22310740 (Version 1)
Quarter: 2023Q2

REPORT INFORMATION
  Report Type: Spontaneous
  Country: US (occurrence: US)
  Receive Date: 20230511
  Receipt Date: 20230511
  Transmission Date: 20230722
  Serious: No
  Sender: FDA-Public Use
  Company Number: US-GLENMARK PHARMACEUTICALS-2023GMK080578

PATIENT

DRUGS (1)
  1. NAPROXEN [Suspect]
     Active Substance: NAPROXEN
     Indication: Pain management
     Dosage: 500 MILLIGRAM
     Route: 048

REACTIONS (2)
  - Abdominal discomfort [Unknown]
  - Nausea [Unknown]
